FAERS Safety Report 8541445-8 (Version None)
Quarter: 2012Q3

REPORT INFORMATION
  Report Type: 
  Country: None (occurrence: None)
  Receive Date: 20120726
  Receipt Date: 20110922
  Transmission Date: 20120928
  Serious: No
  Sender: FDA-Public Use
  Company Number: US-ASTRAZENECA-2011SE57032

PATIENT
  Age: 68 Year
  Sex: Female
  Weight: 123.8 kg

DRUGS (6)
  1. SEROQUEL [Suspect]
     Indication: SCHIZOAFFECTIVE DISORDER
     Route: 048
  2. DENECAR [Concomitant]
  3. SEROQUEL [Suspect]
     Route: 048
  4. LIBRIUM [Concomitant]
     Indication: ANXIETY
  5. ZOCOR [Concomitant]
  6. ZEITA [Concomitant]

REACTIONS (3)
  - DRUG DOSE OMISSION [None]
  - FEELING ABNORMAL [None]
  - STRESS [None]
